FAERS Safety Report 7048176-4 (Version None)
Quarter: 2010Q4

REPORT INFORMATION
  Report Type: 
  Country: None (occurrence: None)
  Receive Date: 20101015
  Receipt Date: 20101001
  Transmission Date: 20110411
  Serious: Yes (Other)
  Sender: FDA-Public Use
  Company Number: PHHY2010IN66394

PATIENT
  Age: 22 Year
  Sex: Male

DRUGS (5)
  1. CLOFAZIMINE [Suspect]
     Dosage: UNK
  2. RIFAMPICIN [Suspect]
     Dosage: UNK
  3. DAPSONE [Suspect]
     Dosage: UNK
  4. STEROIDS NOS [Concomitant]
  5. PREDNISOLONE [Concomitant]
     Dosage: 40 MG PER DAY

REACTIONS (7)
  - ERYTHEMA [None]
  - NEURITIS [None]
  - SKIN LESION [None]
  - SKIN PLAQUE [None]
  - TENDERNESS [None]
  - TYPE IV HYPERSENSITIVITY REACTION [None]
  - VIITH NERVE PARALYSIS [None]
